FAERS Safety Report 6697370-0 (Version None)
Quarter: 2010Q2

REPORT INFORMATION
  Report Type: 
  Country: None (occurrence: None)
  Receive Date: 20100426
  Receipt Date: 20100413
  Transmission Date: 20101027
  Serious: Yes (Other)
  Sender: FDA-Public Use
  Company Number: US-ELI_LILLY_AND_COMPANY-US201004004299

PATIENT

DRUGS (4)
  1. GEMZAR [Suspect]
     Indication: ACUTE MYELOID LEUKAEMIA
     Dosage: 10 MG/M2/MIN, 12 HR INFUSION, DAY 1
  2. MITOXANTRONE [Concomitant]
     Indication: ACUTE MYELOID LEUKAEMIA
     Dosage: 10 MG/M2, DAYS 1-3
  3. FLUDARABINE [Concomitant]
     Indication: ACUTE MYELOID LEUKAEMIA
     Dosage: 25 MG/M2, DAYS 1-5
  4. GRANULOCYTE COLONY STIMULATING FACTOR [Concomitant]

REACTIONS (1)
  - OESOPHAGITIS [None]
